FAERS Safety Report 4736954-3 (Version None)
Quarter: 2005Q3

REPORT INFORMATION
  Report Type: 
  Country: None (occurrence: None)
  Receive Date: 20050803
  Receipt Date: 20050720
  Transmission Date: 20060218
  Serious: Yes (Other)
  Sender: FDA-Public Use
  Company Number: 200512958BCC

PATIENT
  Sex: Male

DRUGS (3)
  1. ALEVE [Suspect]
  2. ASPIRIN [Suspect]
  3. ... [Concomitant]

REACTIONS (1)
  - FEELING ABNORMAL [None]
